FAERS Safety Report 8570766-8 (Version None)
Quarter: 2012Q3

REPORT INFORMATION
  Report Type: 
  Country: None (occurrence: None)
  Receive Date: 20120805
  Receipt Date: 20120727
  Transmission Date: 20120928
  Serious: Yes (Hospitalization)
  Sender: FDA-Public Use
  Company Number: US-009507513-2012SP035060

PATIENT

DRUGS (5)
  1. ASMANEX TWISTHALER [Suspect]
     Indication: ASTHMA
     Dates: end: 20110801
  2. FORADIL [Suspect]
     Indication: ASTHMA
     Dates: end: 20110801
  3. FLUTICASONE PROPIONATE [Suspect]
     Indication: ASTHMA
     Dosage: 2 DF, BID
     Route: 055
     Dates: start: 20120201, end: 20120531
  4. FLUTICASONE PROPIONATE [Suspect]
     Dosage: 1 DF, BID
     Route: 055
  5. INTERFERON (UNSPECIFIED) [Concomitant]
     Indication: PRODUCT USED FOR UNKNOWN INDICATION

REACTIONS (7)
  - GLOSSODYNIA [None]
  - APHONIA [None]
  - CANDIDIASIS [None]
  - WHEEZING [None]
  - SWOLLEN TONGUE [None]
  - COUGH [None]
  - TRANSIENT ISCHAEMIC ATTACK [None]
